FAERS Safety Report 5457674-6 (Version None)
Quarter: 2007Q3

REPORT INFORMATION
  Report Type: 
  Country: None (occurrence: None)
  Receive Date: 20070918
  Receipt Date: 20070309
  Transmission Date: 20080115
  Serious: No
  Sender: FDA-Public Use
  Company Number: US-ASTRAZENECA-2007UW04673

PATIENT
  Age: 59 Year
  Sex: Female
  Weight: 68 kg

DRUGS (5)
  1. SEROQUEL [Suspect]
     Indication: INSOMNIA
     Route: 048
     Dates: start: 19980101
  2. LEVOXYL [Concomitant]
  3. ALPRAZOLAM [Concomitant]
  4. TEMAZEPAM [Concomitant]
  5. FOSAMAX [Concomitant]

REACTIONS (1)
  - HYPOTHERMIA [None]
